FAERS Safety Report 6732259-X (Version None)
Quarter: 2010Q2

REPORT INFORMATION
  Report Type: 
  Country: None (occurrence: None)
  Receive Date: 20100519
  Receipt Date: 20100511
  Transmission Date: 20101027
  Serious: Yes (Other)
  Sender: FDA-Public Use
  Company Number: B0637988A

PATIENT
  Sex: Female

DRUGS (14)
  1. PAXIL [Suspect]
     Indication: PAIN
     Dosage: 10MG PER DAY
     Route: 048
     Dates: start: 20091002
  2. FOSAMAC [Suspect]
     Indication: OSTEOPOROSIS
     Dosage: 35MG WEEKLY
     Route: 048
     Dates: start: 20090406, end: 20100312
  3. KENTAN [Suspect]
     Indication: BACK PAIN
     Dosage: 180MG PER DAY
     Route: 048
     Dates: start: 20091002, end: 20100312
  4. SIMVASTATIN [Concomitant]
     Dosage: 10MG PER DAY
     Route: 048
  5. ATENOLOL [Concomitant]
     Indication: DRUG USE FOR UNKNOWN INDICATION
     Route: 048
  6. DOXAZOSIN MESYLATE [Concomitant]
     Indication: HYPERTENSION
     Dosage: 6MG PER DAY
     Route: 048
  7. NIFEDIPINE [Concomitant]
     Indication: HYPERTENSION
     Dosage: 40MG PER DAY
     Route: 048
  8. SELBEX [Concomitant]
     Indication: DRUG USE FOR UNKNOWN INDICATION
     Route: 048
  9. ACETAMINOPHEN [Concomitant]
     Indication: DRUG USE FOR UNKNOWN INDICATION
     Dosage: 200MG PER DAY
     Route: 048
  10. TOWAMIN [Concomitant]
     Indication: HYPERTENSION
     Dosage: 25MG PER DAY
     Route: 048
  11. CELOOP [Concomitant]
     Dosage: 1.5G PER DAY
     Route: 048
  12. LENDEM [Concomitant]
     Dosage: .25MG PER DAY
     Route: 048
  13. D-ALFA [Concomitant]
     Indication: OSTEOPOROSIS
     Dosage: .75MG PER DAY
     Route: 048
     Dates: start: 20090406
  14. ASPARA CA [Concomitant]
     Indication: OSTEOPOROSIS
     Dosage: 600MG PER DAY
     Route: 048
     Dates: start: 20090406

REACTIONS (8)
  - HAEMATOCRIT DECREASED [None]
  - HAEMOGLOBIN DECREASED [None]
  - LYMPHOCYTE COUNT DECREASED [None]
  - NEUTROPHIL COUNT INCREASED [None]
  - NORMOCHROMIC NORMOCYTIC ANAEMIA [None]
  - RED BLOOD CELL COUNT DECREASED [None]
  - RETICULOCYTE COUNT INCREASED [None]
  - WHITE BLOOD CELL COUNT DECREASED [None]
